FAERS Safety Report 9391152 (Version 1)
Quarter: 2013Q3

REPORT INFORMATION
  Report Type: Report from Study
  Country: JP (occurrence: JP)
  Receive Date: 20130709
  Receipt Date: 20130709
  Transmission Date: 20140515
  Serious: No
  Sender: FDA-Public Use
  Company Number: JP-JNJFOC-20130703128

PATIENT
  Age: 44 Year
  Sex: Male
  Weight: 82 kg

DRUGS (18)
  1. STELARA [Suspect]
     Indication: PSORIATIC ARTHROPATHY
     Route: 058
     Dates: start: 20120925
  2. STELARA [Suspect]
     Indication: PSORIATIC ARTHROPATHY
     Route: 058
     Dates: start: 20110927
  3. STELARA [Suspect]
     Indication: PSORIATIC ARTHROPATHY
     Route: 058
     Dates: start: 20111025
  4. STELARA [Suspect]
     Indication: PSORIATIC ARTHROPATHY
     Route: 058
     Dates: start: 20120703
  5. TRAMACET [Suspect]
     Indication: PSORIATIC ARTHROPATHY
     Route: 048
     Dates: start: 20120703
  6. TRAMACET [Suspect]
     Indication: PSORIATIC ARTHROPATHY
     Route: 048
     Dates: start: 20111122, end: 20120528
  7. ISCOTIN [Suspect]
     Indication: PROPHYLAXIS
     Route: 048
     Dates: end: 20120702
  8. RHEUMATREX [Suspect]
     Indication: PSORIATIC ARTHROPATHY
     Route: 048
     Dates: start: 20110927, end: 20111024
  9. RHEUMATREX [Suspect]
     Indication: PSORIATIC ARTHROPATHY
     Route: 048
     Dates: start: 20111025, end: 20111220
  10. PYDOXAL [Concomitant]
     Indication: PROPHYLAXIS
     Route: 048
     Dates: end: 20120702
  11. OLMETEC [Concomitant]
     Route: 048
  12. AMLODIN [Concomitant]
     Route: 048
     Dates: start: 20120117, end: 20120702
  13. PARIET [Concomitant]
     Indication: PROPHYLAXIS
     Route: 048
     Dates: start: 20111025
  14. LOXONIN [Concomitant]
     Indication: PSORIATIC ARTHROPATHY
     Route: 048
     Dates: start: 20120529, end: 20120702
  15. PRIMPERAN [Concomitant]
     Route: 048
     Dates: start: 20120703, end: 20120806
  16. URSO [Concomitant]
     Route: 048
     Dates: start: 20111220
  17. MAGLAX [Concomitant]
     Indication: CONSTIPATION
     Route: 048
     Dates: start: 20111227, end: 20120702
  18. MAGLAX [Concomitant]
     Indication: CONSTIPATION
     Route: 048
     Dates: start: 20120703

REACTIONS (1)
  - Hepatic enzyme increased [Recovered/Resolved]
